FAERS Safety Report 4571122-X (Version None)
Quarter: 2005Q1

REPORT INFORMATION
  Report Type: 
  Country: None (occurrence: None)
  Receive Date: 20050202
  Receipt Date: 20050112
  Transmission Date: 20050727
  Serious: Yes (Other)
  Sender: FDA-Public Use
  Company Number: US_0501110104

PATIENT
  Sex: Female

DRUGS (2)
  1. GEMCITABINE HYDROCHLORIDE-IV (GEMCITABINE) [Suspect]
     Indication: LUNG NEOPLASM MALIGNANT
  2. CARBOPLATIN [Concomitant]

REACTIONS (3)
  - BLISTER [None]
  - EPIDERMOLYSIS [None]
  - ERYTHEMA [None]
